FAERS Safety Report 7414588-X (Version None)
Quarter: 2011Q2

REPORT INFORMATION
  Report Type: 
  Country: None (occurrence: None)
  Receive Date: 20110414
  Receipt Date: 20110408
  Transmission Date: 20111010
  Serious: Yes (Other)
  Sender: FDA-Public Use
  Company Number: US-BRISTOL-MYERS SQUIBB COMPANY-15035454

PATIENT
  Age: 56 Year
  Sex: Male
  Weight: 71 kg

DRUGS (7)
  1. GLUCOVANCE [Concomitant]
     Dosage: 1DF=5/500(UNITS NOT SPECIFIED).
     Dates: start: 20090401
  2. LISINOPRIL [Concomitant]
  3. ASPIRIN [Concomitant]
  4. PRAVASTATIN SODIUM [Concomitant]
  5. ACTOS [Concomitant]
  6. ONGLYZA [Suspect]
     Indication: DIABETES MELLITUS
     Dates: start: 20100119, end: 20100318
  7. LIPITOR [Suspect]
     Indication: HYPERLIPIDAEMIA
     Route: 048
     Dates: start: 20090301, end: 20100318

REACTIONS (1)
  - PANCREATITIS [None]
